FAERS Safety Report 17230172 (Version 5)
Quarter: 2021Q2

REPORT INFORMATION
  Report Type: Spontaneous
  Country: JP (occurrence: JP)
  Receive Date: 20200103
  Receipt Date: 20210520
  Transmission Date: 20210716
  Serious: Yes (Other)
  Sender: FDA-Public Use
  Company Number: JP-JNJFOC-20191245586

PATIENT
  Sex: Male

DRUGS (22)
  1. XEPLION [Suspect]
     Active Substance: PALIPERIDONE PALMITATE
     Indication: SCHIZOPHRENIA
     Dosage: PALIPERIDONE PALMITATE:25MG
     Route: 030
     Dates: start: 201911, end: 201911
  2. AMITIZA [Concomitant]
     Active Substance: LUBIPROSTONE
     Route: 048
  3. XEPLION [Suspect]
     Active Substance: PALIPERIDONE PALMITATE
     Route: 030
     Dates: start: 2019, end: 2019
  4. ZOLPIDEM TARTRATE OD [Concomitant]
     Active Substance: ZOLPIDEM TARTRATE
     Route: 048
  5. REXULTI [Concomitant]
     Active Substance: BREXPIPRAZOLE
     Dosage: AT BEDTIME
     Route: 048
  6. GLACTIV [Concomitant]
     Active Substance: SITAGLIPTIN
     Indication: DIABETES MELLITUS
     Route: 048
  7. DEPAKENE [Concomitant]
     Active Substance: VALPROIC ACID
     Dosage: PER ORAL MEDICINE, AT BEDTIME
     Route: 048
  8. XEPLION [Suspect]
     Active Substance: PALIPERIDONE PALMITATE
     Route: 030
     Dates: start: 2021
  9. LEVOTOMIN [LEVOMEPROMAZINE MALEATE] [Suspect]
     Active Substance: LEVOMEPROMAZINE
     Indication: PRODUCT USED FOR UNKNOWN INDICATION
     Route: 048
  10. LEVOTOMIN [LEVOMEPROMAZINE MALEATE] [Suspect]
     Active Substance: LEVOMEPROMAZINE
     Route: 048
  11. PIMURO [Concomitant]
     Dosage: GRANULATED POWDER, DOSE UNKNOWN IN THE EVENING
     Route: 048
  12. RISPERDAL [Suspect]
     Active Substance: RISPERIDONE
     Indication: SCHIZOPHRENIA
     Dosage: RISPERIDONE:0.5MG
     Route: 048
  13. LULLAN [Concomitant]
     Active Substance: PEROSPIRONE HYDROCHLORIDE
     Indication: DIABETES MELLITUS
     Route: 048
  14. DAYVIGO [Concomitant]
     Active Substance: LEMBOREXANT
     Dosage: PER ORAL MEDICINE
     Route: 048
  15. XEPLION [Suspect]
     Active Substance: PALIPERIDONE PALMITATE
     Route: 030
     Dates: start: 2019
  16. XEPLION [Suspect]
     Active Substance: PALIPERIDONE PALMITATE
     Route: 030
     Dates: start: 2019, end: 2019
  17. XEPLION [Suspect]
     Active Substance: PALIPERIDONE PALMITATE
     Route: 030
     Dates: start: 2020, end: 2020
  18. XEPLION [Suspect]
     Active Substance: PALIPERIDONE PALMITATE
     Route: 030
     Dates: start: 202103
  19. XEPLION [Suspect]
     Active Substance: PALIPERIDONE PALMITATE
     Route: 030
     Dates: start: 202011, end: 202011
  20. BROTIZOLAM OD [Concomitant]
     Active Substance: BROTIZOLAM
     Route: 048
  21. XEPLION [Suspect]
     Active Substance: PALIPERIDONE PALMITATE
     Route: 030
     Dates: start: 2020, end: 2020
  22. XEPLION [Suspect]
     Active Substance: PALIPERIDONE PALMITATE
     Route: 030
     Dates: start: 2021

REACTIONS (18)
  - Malaise [Unknown]
  - Blood glucose increased [Unknown]
  - Constipation [Unknown]
  - Inappropriate affect [Unknown]
  - Locked-in syndrome [Unknown]
  - Delusion [Unknown]
  - Patient elopement [Unknown]
  - Persecutory delusion [Unknown]
  - Sleep deficit [Unknown]
  - Feeling abnormal [Unknown]
  - Suicide attempt [Unknown]
  - Inappropriate schedule of product administration [Unknown]
  - Off label use [Unknown]
  - Abnormal behaviour [Unknown]
  - Hallucination, auditory [Unknown]
  - Hallucination, visual [Unknown]
  - Insomnia [Unknown]
  - Irritability [Unknown]

NARRATIVE: CASE EVENT DATE: 2020
